FAERS Safety Report 25845279 (Version 1)
Quarter: 2025Q3

REPORT INFORMATION
  Report Type: Spontaneous
  Country: GB (occurrence: GB)
  Receive Date: 20250925
  Receipt Date: 20250925
  Transmission Date: 20251021
  Serious: Yes (Disabling, Other)
  Sender: VIIV
  Company Number: None

PATIENT
  Age: 60 Year
  Sex: Male
  Weight: 85 kg

DRUGS (1)
  1. DOLUTEGRAVIR [Suspect]
     Active Substance: DOLUTEGRAVIR
     Indication: HIV infection
     Dates: start: 20220911, end: 20250711

REACTIONS (8)
  - Urticaria [Recovered/Resolved]
  - Oedema [Recovered/Resolved]
  - Brain fog [Recovering/Resolving]
  - Fatigue [Recovering/Resolving]
  - Angioedema [Recovered/Resolved]
  - Abnormal dreams [Recovering/Resolving]
  - Confusional state [Recovering/Resolving]
  - Affect lability [Recovering/Resolving]

NARRATIVE: CASE EVENT DATE: 20220911
